FAERS Safety Report 7079830-6 (Version None)
Quarter: 2010Q4

REPORT INFORMATION
  Report Type: 
  Country: None (occurrence: None)
  Receive Date: 20101102
  Receipt Date: 20101025
  Transmission Date: 20110411
  Serious: Yes (Death)
  Sender: FDA-Public Use
  Company Number: A0888663A

PATIENT
  Sex: Female

DRUGS (2)
  1. ARIXTRA [Suspect]
     Route: 058
  2. COUMADIN [Suspect]
     Route: 065

REACTIONS (1)
  - HAEMORRHAGE [None]
